FAERS Safety Report 6586649-9 (Version None)
Quarter: 2010Q1

REPORT INFORMATION
  Report Type: 
  Country: None (occurrence: None)
  Receive Date: 20100216
  Receipt Date: 20100216
  Transmission Date: 20100710
  Serious: Yes (Life-Threatening)
  Sender: FDA-Public Use
  Company Number: None

PATIENT
  Age: 62 Year
  Sex: Male

DRUGS (1)
  1. PRAMIPEXOLE DIHYDROCHLORIDE [Suspect]
     Dosage: 1.5MG -1 TABLET- FOUR TIMES DAILY PO, 3 DOSES
     Route: 048
     Dates: start: 20100209, end: 20100209

REACTIONS (6)
  - ABASIA [None]
  - DIZZINESS [None]
  - DYSARTHRIA [None]
  - PARALYSIS [None]
  - PRODUCT SUBSTITUTION ISSUE [None]
  - VISION BLURRED [None]
